FAERS Safety Report 25366677 (Version 5)
Quarter: 2025Q4

REPORT INFORMATION
  Report Type: Spontaneous
  Country: JP (occurrence: JP)
  Receive Date: 20250528
  Receipt Date: 20251223
  Transmission Date: 20260117
  Serious: Yes (Hospitalization, Other)
  Sender: AMGEN
  Company Number: JP-KYOWAKIRIN-2025KK006226

PATIENT
  Age: 81 Year
  Sex: Female

DRUGS (14)
  1. DARBEPOETIN ALFA [Suspect]
     Active Substance: DARBEPOETIN ALFA
     Indication: Nephrogenic anaemia
     Dosage: 20 UG, 1X/WEEK
     Route: 040
     Dates: start: 20241023, end: 20250107
  2. DARBEPOETIN ALFA [Suspect]
     Active Substance: DARBEPOETIN ALFA
     Dosage: 15 UG, 1X/WEEK
     Route: 040
     Dates: start: 20240812, end: 20241022
  3. DARBEPOETIN ALFA [Suspect]
     Active Substance: DARBEPOETIN ALFA
     Dosage: 30 UG, 1X/WEEK
     Route: 040
     Dates: start: 20250108, end: 20250304
  4. DARBEPOETIN ALFA [Suspect]
     Active Substance: DARBEPOETIN ALFA
     Dosage: 40 UG, 1X/WEEK
     Route: 040
     Dates: start: 20250305
  5. ELDECALCITOL [Suspect]
     Active Substance: ELDECALCITOL
     Indication: Osteoporosis
     Dosage: 0.75 UG/DAY
     Route: 048
     Dates: start: 20250522, end: 20250616
  6. TENAPANOR HYDROCHLORIDE [Concomitant]
     Active Substance: TENAPANOR HYDROCHLORIDE
     Indication: Hyperphosphataemia
     Dosage: 5 MG, BID
     Route: 048
     Dates: start: 20240913, end: 20241124
  7. TENAPANOR HYDROCHLORIDE [Concomitant]
     Active Substance: TENAPANOR HYDROCHLORIDE
     Dosage: 10 MG, BID
     Route: 048
     Dates: start: 20241125
  8. MAXACALCITOL [Concomitant]
     Active Substance: MAXACALCITOL
     Indication: Hyperparathyroidism secondary
     Dosage: 7.5 UG PER WEEK
     Route: 065
     Dates: end: 20241025
  9. MAXACALCITOL [Concomitant]
     Active Substance: MAXACALCITOL
     Dosage: 5 UG PER WEEK
     Route: 065
     Dates: start: 20241028, end: 20250521
  10. LEVOTHYROXINE [Concomitant]
     Active Substance: LEVOTHYROXINE
     Indication: Hypothyroidism
     Dosage: UNK
     Route: 048
  11. PLAVIX [Concomitant]
     Active Substance: CLOPIDOGREL BISULFATE
     Indication: Myocardial ischaemia
     Dosage: UNK
     Route: 048
  12. CRESTOR [Concomitant]
     Active Substance: ROSUVASTATIN CALCIUM
     Indication: Hypercholesterolaemia
     Dosage: UNK
     Route: 048
  13. HALCION [Concomitant]
     Active Substance: TRIAZOLAM
     Indication: Insomnia
     Dosage: UNK
     Route: 048
  14. ESZOPICLONE [Concomitant]
     Active Substance: ESZOPICLONE
     Indication: Insomnia
     Dosage: UNK
     Route: 048

REACTIONS (13)
  - Compression fracture [Recovering/Resolving]
  - Fall [Recovering/Resolving]
  - Hypercalcaemia [Recovered/Resolved]
  - Hypocalcaemia [Recovered/Resolved]
  - Muscle spasms [Recovered/Resolved]
  - Constipation [Recovered/Resolved]
  - Muscle spasms [Recovered/Resolved]
  - Blood parathyroid hormone decreased [Recovered/Resolved]
  - Hyperphosphataemia [Recovered/Resolved]
  - Shunt stenosis [Recovered/Resolved]
  - Shunt stenosis [Recovered/Resolved]
  - Shunt stenosis [Recovered/Resolved]
  - Shunt stenosis [Recovered/Resolved]

NARRATIVE: CASE EVENT DATE: 20241125
